FAERS Safety Report 6010181-4 (Version None)
Quarter: 2008Q4

REPORT INFORMATION
  Report Type: 
  Country: None (occurrence: None)
  Receive Date: 20081217
  Receipt Date: 20081217
  Transmission Date: 20090506
  Serious: No
  Sender: FDA-Public Use
  Company Number: None

PATIENT
  Age: 60 Year
  Sex: Female
  Weight: 70.7611 kg

DRUGS (2)
  1. CYMBALTA [Suspect]
     Indication: DEPRESSION
     Dosage: 60 MG ONCE ORAL
     Route: 048
     Dates: start: 20080730
  2. CYMBALTA [Suspect]
     Indication: FIBROMYALGIA
     Dosage: 60 MG ONCE ORAL
     Route: 048
     Dates: start: 20080730

REACTIONS (4)
  - CONFUSIONAL STATE [None]
  - HEART RATE INCREASED [None]
  - MIGRAINE [None]
  - PALPITATIONS [None]
